FAERS Safety Report 8091253-X (Version None)
Quarter: 2012Q1

REPORT INFORMATION
  Report Type: 
  Country: None (occurrence: None)
  Receive Date: 20120129
  Receipt Date: 20111025
  Transmission Date: 20120608
  Serious: No
  Sender: FDA-Public Use
  Company Number: US-ABBOTT-11P-163-0868214-00

PATIENT
  Age: 41 Year
  Sex: Male

DRUGS (5)
  1. HUMIRA [Suspect]
     Indication: PSORIASIS
  2. LISINOPRIL [Concomitant]
     Indication: PRODUCT USED FOR UNKNOWN INDICATION
  3. CRESTOR [Concomitant]
     Indication: PROPHYLAXIS
  4. ANDROGEL [Concomitant]
     Indication: BLOOD TESTOSTERONE DECREASED
  5. HUMIRA [Suspect]

REACTIONS (3)
  - PAIN IN EXTREMITY [None]
  - MULTIPLE FRACTURES [None]
  - PSORIATIC ARTHROPATHY [None]
